FAERS Safety Report 21586224 (Version 2)
Quarter: 2025Q2

REPORT INFORMATION
  Report Type: Spontaneous
  Country: ES (occurrence: ES)
  Receive Date: 20221112
  Receipt Date: 20250620
  Transmission Date: 20250716
  Serious: Yes (Other)
  Sender: AUROBINDO
  Company Number: ES-LESVI-2022005102

PATIENT
  Age: 66 Year
  Sex: Male

DRUGS (4)
  1. VORICONAZOLE [Interacting]
     Active Substance: VORICONAZOLE
     Indication: Product used for unknown indication
     Route: 065
  2. TAMSULOSIN [Interacting]
     Active Substance: TAMSULOSIN
     Indication: Urinary retention
     Route: 065
  3. AMLODIPINE [Concomitant]
     Active Substance: AMLODIPINE BESYLATE
     Indication: Product used for unknown indication
     Route: 065
  4. AMPHOTERICIN B [Concomitant]
     Active Substance: AMPHOTERICIN B
     Indication: Product used for unknown indication
     Route: 065

REACTIONS (4)
  - Urinary retention [Unknown]
  - Blood pressure decreased [Recovered/Resolved]
  - Drug interaction [Unknown]
  - Drug level increased [Unknown]
